FAERS Safety Report 6591329-X (Version None)
Quarter: 2010Q1

REPORT INFORMATION
  Report Type: 
  Country: None (occurrence: None)
  Receive Date: 20100219
  Receipt Date: 20100212
  Transmission Date: 20100710
  Serious: Yes (Other)
  Sender: FDA-Public Use
  Company Number: US-RB-020895-09

PATIENT
  Age: 27 Year
  Sex: Male

DRUGS (3)
  1. SUBOXONE [Suspect]
     Indication: DRUG USE FOR UNKNOWN INDICATION
     Dosage: DOSE AND FREQUENCY UNKNOWN
     Route: 065
  2. BENZODIAZAPINE [Concomitant]
     Indication: DRUG USE FOR UNKNOWN INDICATION
     Dosage: UNKNOWN FORM, DOSE SIZE/FREQUENCY
     Route: 065
  3. ANTABUSE [Concomitant]
     Indication: ALCOHOLISM
     Dosage: FORM, DOSE AND FREQUENCY UNKNOWN
     Route: 065

REACTIONS (4)
  - FEELING ABNORMAL [None]
  - LIBIDO DECREASED [None]
  - OVERDOSE [None]
  - SUICIDAL IDEATION [None]
